FAERS Safety Report 15261057 (Version 3)
Quarter: 2018Q4

REPORT INFORMATION
  Report Type: Not Available
  Country: US (occurrence: US)
  Receive Date: 20180809
  Receipt Date: 20181207
  Transmission Date: 20190204
  Serious: Yes (Hospitalization)
  Sender: FDA-Public Use
  Company Number: US-NEUROCRINE BIOSCIENCES INC.-2018NBI02245

PATIENT
  Age: 78 Year
  Sex: Female

DRUGS (19)
  1. MIDODRINE HYDROCHLORIDE. [Concomitant]
     Active Substance: MIDODRINE HYDROCHLORIDE
     Route: 048
  2. VYTORIN [Concomitant]
     Active Substance: EZETIMIBE\SIMVASTATIN
     Dosage: 10-10 MG AT BEDTIME
     Route: 048
     Dates: start: 20160518
  3. LAMICTAL [Concomitant]
     Active Substance: LAMOTRIGINE
     Dosage: AT BEDTIME
     Route: 048
     Dates: start: 20181024
  4. TRAZODONE HYDROCHLORIDE. [Concomitant]
     Active Substance: TRAZODONE HYDROCHLORIDE
     Dosage: TAKE HALF OF A TABLET (25 MG) DAILY AT BREAKFAST AND 1 TABLET (50 MG) DAILY AT 3 PM
     Route: 048
     Dates: end: 20160304
  5. TRADJENTA [Concomitant]
     Active Substance: LINAGLIPTIN
     Route: 048
  6. INGREZZA [Suspect]
     Active Substance: VALBENAZINE
     Indication: TARDIVE DYSKINESIA
     Route: 048
     Dates: start: 20180315, end: 20180625
  7. ARICEPT [Concomitant]
     Active Substance: DONEPEZIL HYDROCHLORIDE
     Dosage: AT BEDTIME
     Route: 048
     Dates: start: 20170721
  8. LASIX [Concomitant]
     Active Substance: FUROSEMIDE
     Dates: start: 20170721
  9. SYNTHROID [Concomitant]
     Active Substance: LEVOTHYROXINE SODIUM
     Route: 048
     Dates: start: 20160518
  10. TRAZODONE HYDROCHLORIDE. [Concomitant]
     Active Substance: TRAZODONE HYDROCHLORIDE
     Dosage: TAKE 1/2 (25 MG) TABLET IN THE MORNING AND AT 3 PM
     Route: 048
     Dates: start: 20160304, end: 20160518
  11. PROBIOTIC [Concomitant]
     Active Substance: PROBIOTICS NOS
  12. ACTONEL [Concomitant]
     Active Substance: RISEDRONATE SODIUM
     Route: 048
     Dates: start: 20160518
  13. INGREZZA [Suspect]
     Active Substance: VALBENAZINE
     Route: 048
     Dates: start: 20180625, end: 20180806
  14. ANASTROZOLE. [Concomitant]
     Active Substance: ANASTROZOLE
     Route: 048
  15. VITAMIN D3 [Concomitant]
     Active Substance: CHOLECALCIFEROL
     Route: 048
     Dates: start: 20180201
  16. DEPLIN [Concomitant]
     Active Substance: LEVOMEFOLATE CALCIUM
     Dosage: 15 15-90.314 MG
     Route: 048
     Dates: start: 20180409
  17. SYNTHROID [Concomitant]
     Active Substance: LEVOTHYROXINE SODIUM
     Dates: end: 20160518
  18. INGREZZA [Suspect]
     Active Substance: VALBENAZINE
     Route: 048
     Dates: start: 20180806, end: 20180913
  19. TRAZODONE HYDROCHLORIDE. [Concomitant]
     Active Substance: TRAZODONE HYDROCHLORIDE
     Dosage: AT BEDTIME; AS REQUIRED
     Route: 048
     Dates: start: 20170727

REACTIONS (5)
  - Aortic stenosis [Unknown]
  - Sedation [Unknown]
  - Drug hypersensitivity [Unknown]
  - Incorrect dose administered [Recovered/Resolved]
  - Cardiac failure congestive [Unknown]

NARRATIVE: CASE EVENT DATE: 2018
